FAERS Safety Report 6141933-8 (Version None)
Quarter: 2009Q1

REPORT INFORMATION
  Report Type: 
  Country: None (occurrence: None)
  Receive Date: 20090331
  Receipt Date: 20090305
  Transmission Date: 20090719
  Serious: Yes (Other)
  Sender: FDA-Public Use
  Company Number: 2009SP006292

PATIENT
  Age: 51 Year
  Sex: Female

DRUGS (2)
  1. RIBAVIRIN [Suspect]
     Indication: HEPATITIS C
  2. INTERFERON ALFA [Suspect]
     Indication: HEPATITIS C

REACTIONS (2)
  - HYPERTHYROIDISM [None]
  - HYPOTHYROIDISM [None]
